FAERS Safety Report 6741707-0 (Version None)
Quarter: 2010Q2

REPORT INFORMATION
  Report Type: 
  Country: None (occurrence: None)
  Receive Date: 20100520
  Receipt Date: 20091013
  Transmission Date: 20101027
  Serious: Yes (Other)
  Sender: FDA-Public Use
  Company Number: 2006150829

PATIENT
  Age: 51 Year
  Sex: Female

DRUGS (7)
  1. DEPO-PROVERA [Suspect]
     Indication: CONTRACEPTION
     Dosage: INTRAMUSCULAR
     Route: 030
     Dates: start: 19950601, end: 20050601
  2. LORAZEPAM [Concomitant]
  3. PROZAC [Concomitant]
  4. ZANAFLEX [Concomitant]
  5. CELEXA [Concomitant]
  6. WELLBUTRIN [Concomitant]
  7. CYMBALTA [Concomitant]

REACTIONS (1)
  - OSTEOPOROSIS [None]
